FAERS Safety Report 5377641-0 (Version None)
Quarter: 2007Q3

REPORT INFORMATION
  Report Type: 
  Country: None (occurrence: None)
  Receive Date: 20070703
  Receipt Date: 20070626
  Transmission Date: 20080115
  Serious: Yes (Hospitalization, Other)
  Sender: FDA-Public Use
  Company Number: FR-PFIZER INC-2007030436

PATIENT
  Sex: Male
  Weight: 89 kg

DRUGS (1)
  1. VIAGRA [Suspect]

REACTIONS (2)
  - AMNESIA [None]
  - HEADACHE [None]
